FAERS Safety Report 4303543-4 (Version None)
Quarter: 2004Q1

REPORT INFORMATION
  Report Type: 
  Country: None (occurrence: None)
  Receive Date: 20040223
  Receipt Date: 20031211
  Transmission Date: 20041129
  Serious: Yes (Disabling)
  Sender: FDA-Public Use
  Company Number: 2003-DE-06372UP

PATIENT
  Age: 52 Year
  Sex: Male

DRUGS (8)
  1. MIRAPEX [Suspect]
     Indication: PARKINSON'S DISEASE
     Dosage: 3 MG (1 MG, 3 IN 1 D), PO
     Route: 048
     Dates: start: 20020101
  2. SELEGILINE HCL [Concomitant]
  3. SINEMET CR [Concomitant]
  4. METOPROLOL [Concomitant]
  5. ACETYLSALICYLIC ACID SRT [Concomitant]
  6. LIPITOR [Concomitant]
  7. XANAX [Concomitant]
  8. VIAGRA [Concomitant]

REACTIONS (4)
  - ABNORMAL BEHAVIOUR [None]
  - IMPRISONMENT [None]
  - SEXUAL ABUSE [None]
  - SEXUAL OFFENCE [None]
